FAERS Safety Report 6569917-6 (Version None)
Quarter: 2010Q1

REPORT INFORMATION
  Report Type: 
  Country: None (occurrence: None)
  Receive Date: 20100202
  Receipt Date: 20100202
  Transmission Date: 20100710
  Serious: Yes (Other)
  Sender: FDA-Public Use
  Company Number: None

PATIENT
  Age: 58 Year
  Sex: Male
  Weight: 78.0187 kg

DRUGS (1)
  1. PRAVASTATIN [Suspect]
     Indication: LIPIDS ABNORMAL
     Dosage: 40 MG DAILY PO
     Route: 048
     Dates: start: 20100101, end: 20100131

REACTIONS (3)
  - DEPRESSION [None]
  - INSOMNIA [None]
  - PRODUCT SUBSTITUTION ISSUE [None]
